FAERS Safety Report 9586844 (Version 3)
Quarter: 2013Q4

REPORT INFORMATION
  Report Type: Report from Study
  Country: DE (occurrence: DE)
  Receive Date: 20131003
  Receipt Date: 20131101
  Transmission Date: 20140711
  Serious: Yes (Hospitalization)
  Sender: FDA-Public Use
  Company Number: DE-ROCHE-1283499

PATIENT
  Age: 69 Year
  Sex: Male
  Weight: 72 kg

DRUGS (4)
  1. BEVACIZUMAB [Suspect]
     Indication: COLORECTAL CANCER METASTATIC
     Dosage: ON 16/SEP/2013 HE RECIVED MOST RECENT DOSE 5MG/KG PRIOR TO SAE.
     Route: 042
     Dates: start: 20130830, end: 20130916
  2. OXALIPLATIN [Suspect]
     Indication: COLORECTAL CANCER METASTATIC
     Dosage: ON 16/SEP/2013 HE RECIVED MOST RECNT DOSE 85 MG/M2 PRIOR TO SAE.
     Route: 042
     Dates: start: 20130830, end: 20130916
  3. FOLINIC ACID [Suspect]
     Indication: COLORECTAL CANCER METASTATIC
     Dosage: ON 16/SEP/2013 HE RECIVED MOST RECENT DOSE 200 MG/M2 PRIOR TO SAE.
     Route: 042
     Dates: start: 20130830, end: 20130916
  4. FLUOROURACIL [Suspect]
     Indication: COLORECTAL CANCER METASTATIC
     Dosage: ON 16/SEP/2013 HE RECIVED MOST RECNT DOSE 3200 MG/M2 PRIOR TO SAE.
     Route: 042
     Dates: start: 20130830, end: 20130916

REACTIONS (1)
  - Cervical vertebral fracture [Recovered/Resolved with Sequelae]
